FAERS Safety Report 18298871 (Version 2)
Quarter: 2020Q4

REPORT INFORMATION
  Report Type: Report from Study
  Country: US (occurrence: US)
  Receive Date: 20200923
  Receipt Date: 20201118
  Transmission Date: 20210113
  Serious: Yes (Death)
  Sender: FDA-Public Use
  Company Number: US-BEH-2020122573

PATIENT

DRUGS (3)
  1. HUMAN IMMUNOGLOBULIN (NON-COMPANY) [Suspect]
     Active Substance: HUMAN IMMUNOGLOBULIN G
     Indication: STEVENS-JOHNSON SYNDROME
     Dosage: 50 GRAM, SINGLE
     Route: 042
     Dates: start: 20190525
  2. HUMAN IMMUNOGLOBULIN (NON-COMPANY) [Suspect]
     Active Substance: HUMAN IMMUNOGLOBULIN G
     Indication: TOXIC EPIDERMAL NECROLYSIS
     Dosage: 50 GRAM, SINGLE
     Route: 042
     Dates: start: 20190526
  3. AMPICILLIN [Suspect]
     Active Substance: AMPICILLIN
     Route: 065

REACTIONS (2)
  - Product use in unapproved indication [Fatal]
  - Drug ineffective for unapproved indication [Fatal]
